FAERS Safety Report 5802880-1 (Version None)
Quarter: 2008Q2

REPORT INFORMATION
  Report Type: 
  Country: None (occurrence: None)
  Receive Date: 20080627
  Receipt Date: 20071109
  Transmission Date: 20081010
  Serious: Yes (Life-Threatening, Hospitalization)
  Sender: FDA-Public Use
  Company Number: 531027

PATIENT
  Age: 51 Year
  Sex: Male

DRUGS (2)
  1. INTERFERON ALFA [Suspect]
     Indication: HEPATITIS C
  2. RIBAVIRIN [Suspect]
     Indication: HEPATITIS C

REACTIONS (1)
  - THROMBOTIC THROMBOCYTOPENIC PURPURA [None]
